FAERS Safety Report 5453683-1 (Version None)
Quarter: 2007Q3

REPORT INFORMATION
  Report Type: 
  Country: None (occurrence: None)
  Receive Date: 20070917
  Receipt Date: 20070907
  Transmission Date: 20080115
  Serious: Yes (Death, Hospitalization)
  Sender: FDA-Public Use
  Company Number: DE-AVENTIS-200712206DE

PATIENT
  Age: 61 Year
  Sex: Male
  Weight: 139 kg

DRUGS (3)
  1. ENOXAPARIN SODIUM [Suspect]
     Dosage: DOSE: 1-0-1
     Route: 058
     Dates: start: 20070807, end: 20070811
  2. ENOXAPARIN SODIUM [Suspect]
     Dosage: DOSE: 1-0-1
     Route: 058
     Dates: start: 20070807, end: 20070811
  3. MARCUMAR [Concomitant]
     Dosage: DOSE: NOT REPORTED
     Route: 048

REACTIONS (3)
  - HAEMORRHAGE [None]
  - MYOCARDIAL INFARCTION [None]
  - SEPSIS [None]
